FAERS Safety Report 22729748 (Version 2)
Quarter: 2024Q3

REPORT INFORMATION
  Report Type: Spontaneous
  Country: US (occurrence: US)
  Receive Date: 20230720
  Receipt Date: 20240826
  Transmission Date: 20241016
  Serious: No
  Sender: MEDEXUS PHARMA
  Company Number: US-MEDEXUS PHARMA, INC.-2023MED00058

PATIENT
  Age: 42 Year
  Sex: Female

DRUGS (4)
  1. RASUVO [Suspect]
     Active Substance: METHOTREXATE SODIUM
     Indication: Autoimmune disorder
     Dosage: 10 MG, 1X/WEEK ON SATURDAYS TO RIGHT THIGH
     Dates: end: 2023
  2. RASUVO [Suspect]
     Active Substance: METHOTREXATE SODIUM
     Indication: Skin reaction
  3. RASUVO [Suspect]
     Active Substance: METHOTREXATE SODIUM
     Indication: Autoimmune disorder
     Dosage: ALTERNATING THIGH AND STOMACH
     Dates: start: 2023
  4. RASUVO [Suspect]
     Active Substance: METHOTREXATE SODIUM
     Indication: Skin reaction

REACTIONS (6)
  - Injection site bruising [Not Recovered/Not Resolved]
  - Off label use [Not Recovered/Not Resolved]
  - Device malfunction [Unknown]
  - Device mechanical issue [Not Recovered/Not Resolved]
  - Device leakage [Not Recovered/Not Resolved]
  - Product dose omission issue [Not Recovered/Not Resolved]

NARRATIVE: CASE EVENT DATE: 20230211
